FAERS Safety Report 12965640 (Version 2)
Quarter: 2017Q2

REPORT INFORMATION
  Report Type: Report from Study
  Country: US (occurrence: US)
  Receive Date: 20161122
  Receipt Date: 20170418
  Transmission Date: 20170830
  Serious: Yes (Other)
  Sender: FDA-Public Use
  Company Number: US-BAYER-2016-219615

PATIENT
  Age: 65 Year
  Sex: Male

DRUGS (8)
  1. MELOXICAM. [Concomitant]
     Active Substance: MELOXICAM
  2. NEXAVAR [Suspect]
     Active Substance: SORAFENIB
     Indication: HEPATOCELLULAR CARCINOMA
     Dosage: 400 MG, BID
     Route: 048
     Dates: start: 20161101
  3. NEXAVAR [Suspect]
     Active Substance: SORAFENIB
     Indication: METASTASES TO LUNG
  4. TACROLIMUS. [Concomitant]
     Active Substance: TACROLIMUS
  5. TIZANIDINE. [Concomitant]
     Active Substance: TIZANIDINE
  6. PROBENECID. [Concomitant]
     Active Substance: PROBENECID
  7. AMLODIPINE [Concomitant]
     Active Substance: AMLODIPINE BESYLATE
  8. METOPROLOL TARTRATE. [Concomitant]
     Active Substance: METOPROLOL TARTRATE

REACTIONS (4)
  - Anxiety [Recovered/Resolved]
  - Chest pain [Recovered/Resolved]
  - Diarrhoea [Not Recovered/Not Resolved]
  - Drug ineffective [None]

NARRATIVE: CASE EVENT DATE: 20161102
